FAERS Safety Report 6504293-6 (Version None)
Quarter: 2009Q4

REPORT INFORMATION
  Report Type: 
  Country: None (occurrence: None)
  Receive Date: 20091215
  Receipt Date: 20091202
  Transmission Date: 20100525
  Serious: Yes (Hospitalization)
  Sender: FDA-Public Use
  Company Number: DSJ-2009-13750

PATIENT
  Age: 7 Decade
  Sex: Male

DRUGS (2)
  1. OLMESARTAN MEDOXOMIL [Suspect]
     Indication: HYPERTENSION
     Dosage: UNK, PER ORAL
     Route: 048
  2. NIFEDIPINE [Suspect]

REACTIONS (4)
  - ERYTHEMA [None]
  - PAIN [None]
  - PETECHIAE [None]
  - PRURITUS [None]
